FAERS Safety Report 8571129-1 (Version None)
Quarter: 2012Q3

REPORT INFORMATION
  Report Type: 
  Country: None (occurrence: None)
  Receive Date: 20120806
  Receipt Date: 20120801
  Transmission Date: 20120928
  Serious: No
  Sender: FDA-Public Use
  Company Number: US-PFIZER INC-2012119781

PATIENT
  Age: 53 Year
  Sex: Female
  Weight: 81.633 kg

DRUGS (2)
  1. LEVOXYL [Suspect]
     Indication: HYPOTHYROIDISM
     Dosage: 100 UG, 1X/DAY
     Route: 048
     Dates: start: 20050101
  2. GLUCOPHAGE [Concomitant]
     Indication: INSULIN RESISTANCE
     Dosage: UNK

REACTIONS (1)
  - THYROID FUNCTION TEST ABNORMAL [None]
